FAERS Safety Report 10258383 (Version 1)
Quarter: 2014Q2

REPORT INFORMATION
  Report Type: Spontaneous
  Country: GB (occurrence: GB)
  Receive Date: 20140625
  Receipt Date: 20140625
  Transmission Date: 20141212
  Serious: Yes (Life-Threatening)
  Sender: FDA-Public Use
  Company Number: GB-BANPHARM-20142804

PATIENT
  Age: 5 Year
  Sex: Female
  Weight: 18.4 kg

DRUGS (3)
  1. IBUPROFEN UNKNOWN PRODUCT [Suspect]
     Indication: PAIN
     Dosage: 150MG, TID,
     Route: 048
     Dates: start: 20140521
  2. IBUPROFEN UNKNOWN PRODUCT [Suspect]
     Indication: TONSILLITIS
     Dosage: 150 MG, QID,
     Route: 048
     Dates: start: 20140521
  3. PENICILLIN [Suspect]
     Indication: TONSILLITIS
     Dosage: 125 MG, TID,
     Dates: start: 20140521, end: 20140521

REACTIONS (1)
  - Toxic epidermal necrolysis [Not Recovered/Not Resolved]
